FAERS Safety Report 4659808-X (Version None)
Quarter: 2005Q2

REPORT INFORMATION
  Report Type: 
  Country: None (occurrence: None)
  Receive Date: 20050510
  Receipt Date: 20050502
  Transmission Date: 20051028
  Serious: Yes (Other)
  Sender: FDA-Public Use
  Company Number: 200510874BWH

PATIENT
  Sex: Female

DRUGS (2)
  1. AVELOX [Suspect]
     Indication: LUNG INFECTION
  2. AVELOX [Suspect]
     Indication: MYCOBACTERIAL INFECTION

REACTIONS (7)
  - ARRHYTHMIA [None]
  - ASTHENIA [None]
  - DYSKINESIA [None]
  - FEELING ABNORMAL [None]
  - NERVOUSNESS [None]
  - PALPITATIONS [None]
  - STOMACH DISCOMFORT [None]
